FAERS Safety Report 11438923 (Version 1)
Quarter: 2015Q3

REPORT INFORMATION
  Report Type: Spontaneous
  Country: US (occurrence: US)
  Receive Date: 20150901
  Receipt Date: 20150901
  Transmission Date: 20151125
  Serious: No
  Sender: FDA-Public Use
  Company Number: US-JNJFOC-20150811710

PATIENT
  Age: 51 Year
  Sex: Female
  Weight: 52.16 kg

DRUGS (6)
  1. REMICADE [Suspect]
     Active Substance: INFLIXIMAB
     Indication: ARTHRITIS
     Route: 042
  2. REMICADE [Suspect]
     Active Substance: INFLIXIMAB
     Indication: ARTHRITIS
     Route: 042
     Dates: start: 20150803
  3. REMICADE [Suspect]
     Active Substance: INFLIXIMAB
     Indication: CROHN^S DISEASE
     Route: 042
     Dates: start: 20150803
  4. REMICADE [Suspect]
     Active Substance: INFLIXIMAB
     Indication: CROHN^S DISEASE
     Route: 042
     Dates: start: 1993, end: 1993
  5. REMICADE [Suspect]
     Active Substance: INFLIXIMAB
     Indication: ARTHRITIS
     Route: 042
     Dates: start: 1993, end: 1993
  6. REMICADE [Suspect]
     Active Substance: INFLIXIMAB
     Indication: CROHN^S DISEASE
     Route: 042

REACTIONS (11)
  - Oropharyngeal pain [Recovered/Resolved]
  - Heart rate increased [Unknown]
  - Abnormal loss of weight [Unknown]
  - Rash erythematous [Unknown]
  - Blister [Recovered/Resolved]
  - Crohn^s disease [Unknown]
  - Drug dose omission [Unknown]
  - Feeling jittery [Recovered/Resolved]
  - Adverse drug reaction [Unknown]
  - Candida infection [Unknown]
  - Oral discomfort [Not Recovered/Not Resolved]

NARRATIVE: CASE EVENT DATE: 1993
